FAERS Safety Report 24071476 (Version 1)
Quarter: 2024Q3

REPORT INFORMATION
  Report Type: Report from Study
  Country: CN (occurrence: CN)
  Receive Date: 20240710
  Receipt Date: 20240710
  Transmission Date: 20241016
  Serious: No
  Sender: ROCHE
  Company Number: CN-ROCHE-3565194

PATIENT
  Age: 8 Year
  Sex: Male
  Weight: 24.6 kg

DRUGS (2)
  1. EVRYSDI [Suspect]
     Active Substance: RISDIPLAM
     Indication: Spinal muscular atrophy
     Route: 048
     Dates: start: 20231106
  2. NUSINERSEN SODIUM [Concomitant]
     Active Substance: NUSINERSEN SODIUM
     Indication: Spinal muscular atrophy
     Route: 029
     Dates: start: 20191010

REACTIONS (1)
  - Mouth ulceration [Recovered/Resolved]
